FAERS Safety Report 8013319-2 (Version None)
Quarter: 2011Q4

REPORT INFORMATION
  Report Type: 
  Country: None (occurrence: None)
  Receive Date: 20111229
  Receipt Date: 20111215
  Transmission Date: 20120403
  Serious: Yes (Other)
  Sender: FDA-Public Use
  Company Number: PHNR2007AU01968

PATIENT
  Sex: Male

DRUGS (2)
  1. CLOZARIL [Suspect]
     Dosage: 200 MG
     Dates: end: 20070101
  2. CLOZARIL [Suspect]
     Indication: SCHIZOPHRENIA
     Dosage: 200 MG
     Route: 048
     Dates: start: 20070917, end: 20071003

REACTIONS (22)
  - ISCHAEMIA [None]
  - WEIGHT INCREASED [None]
  - BLOOD CREATINE PHOSPHOKINASE INCREASED [None]
  - LEFT ATRIAL DILATATION [None]
  - SINUS ARRHYTHMIA [None]
  - ELECTROCARDIOGRAM REPOLARISATION ABNORMALITY [None]
  - QRS AXIS ABNORMAL [None]
  - PACEMAKER SYNDROME [None]
  - SINUS TACHYCARDIA [None]
  - ELECTROCARDIOGRAM ST SEGMENT ELEVATION [None]
  - ELECTROCARDIOGRAM ABNORMAL [None]
  - PSYCHOTIC DISORDER [None]
  - BLOOD CHOLESTEROL INCREASED [None]
  - BRADYCARDIA [None]
  - ELECTROCARDIOGRAM T WAVE ABNORMAL [None]
  - TACHYCARDIA [None]
  - RIGHT ATRIAL DILATATION [None]
  - PERICARDIAL EFFUSION [None]
  - EOSINOPHILIA [None]
  - PERICARDITIS [None]
  - TROPONIN INCREASED [None]
  - SALIVARY HYPERSECRETION [None]
